FAERS Safety Report 8892199 (Version 1)
Quarter: 2012Q4

REPORT INFORMATION
  Report Type: Spontaneous
  Country: US (occurrence: None)
  Receive Date: 20121031
  Receipt Date: 20121031
  Transmission Date: 20130627
  Serious: Yes (Hospitalization)
  Sender: FDA-Public Use
  Company Number: UTC-024646

PATIENT
  Age: 62 Year
  Sex: Female
  Weight: 58.63 kg

DRUGS (1)
  1. REMODULIN (2.5 MILLIGRAM/MILLILITERS, INJECTION FOR INFUSION) (TREPROSTINIL SODIUM) [Suspect]
     Indication: PRIMARY PULMONARY HYPERTENSION
     Dosage: 0.012 ug/kg, 1 in 1 min
     Route: 058
     Dates: start: 20120923

REACTIONS (1)
  - Pneumonia [None]
